FAERS Safety Report 14425932 (Version 2)
Quarter: 2018Q1

REPORT INFORMATION
  Report Type: Report from Study
  Country: US (occurrence: US)
  Receive Date: 20180123
  Receipt Date: 20180309
  Transmission Date: 20180509
  Serious: Yes (Other)
  Sender: FDA-Public Use
  Company Number: US-AMGEN-USACT2018006611

PATIENT
  Age: 65 Year
  Sex: Male
  Weight: 84.81 kg

DRUGS (3)
  1. CARFILZOMIB [Suspect]
     Active Substance: CARFILZOMIB
     Indication: PLASMA CELL MYELOMA
     Dosage: 20/27 MG/M2, PER CHEMO REGIM
     Route: 042
     Dates: start: 20180109
  2. ISATUXIMAB [Suspect]
     Active Substance: ISATUXIMAB
     Indication: PLASMA CELL MYELOMA
     Dosage: 10 MG/KG, PER CHEMO REGIM
     Route: 042
     Dates: start: 20180109
  3. ISATUXIMAB [Suspect]
     Active Substance: ISATUXIMAB
     Dosage: UNK UNK, PER CHEMO REGIM
     Route: 042

REACTIONS (1)
  - Urticaria [Recovered/Resolved]

NARRATIVE: CASE EVENT DATE: 20180116
